FAERS Safety Report 4674529-5 (Version None)
Quarter: 2005Q2

REPORT INFORMATION
  Report Type: 
  Country: None (occurrence: None)
  Receive Date: 20050526
  Receipt Date: 20050323
  Transmission Date: 20051028
  Serious: Yes (Disabling)
  Sender: FDA-Public Use
  Company Number: JP-ROCHE-399952

PATIENT
  Age: 67 Year
  Sex: Male

DRUGS (9)
  1. TAMIFLU [Suspect]
     Route: 048
     Dates: start: 20050304, end: 20050308
  2. LORCAM [Suspect]
     Indication: DRUG USE FOR UNKNOWN INDICATION
     Route: 048
     Dates: start: 20040915
  3. CALONAL [Suspect]
     Indication: DRUG USE FOR UNKNOWN INDICATION
     Route: 048
     Dates: start: 20050304
  4. ASVERIN [Concomitant]
     Route: 048
     Dates: start: 20050304
  5. MUCODYNE [Concomitant]
     Route: 048
     Dates: start: 20050304
  6. PROCYLIN [Concomitant]
     Route: 048
     Dates: start: 20040915
  7. JUVELA NICOTINATE [Concomitant]
     Route: 048
     Dates: start: 20040915
  8. MYONAL [Concomitant]
     Route: 048
     Dates: start: 20040915
  9. SELBEX [Concomitant]
     Route: 048
     Dates: start: 20040915

REACTIONS (2)
  - HAEMODIALYSIS [None]
  - RENAL FAILURE ACUTE [None]
